FAERS Safety Report 7804526-X (Version None)
Quarter: 2011Q4

REPORT INFORMATION
  Report Type: 
  Country: None (occurrence: None)
  Receive Date: 20111010
  Receipt Date: 20111005
  Transmission Date: 20120403
  Serious: Yes (Other)
  Sender: FDA-Public Use
  Company Number: PHHY2011JP88343

PATIENT
  Age: 48 Year
  Sex: Female

DRUGS (3)
  1. ZOLEDRONIC ACID [Suspect]
     Indication: METASTASES TO BONE
     Dosage: UNK UKN, UNK
     Route: 041
     Dates: start: 20061001, end: 20071201
  2. ZOLEDRONIC ACID [Suspect]
     Dosage: UNK UKN, UNK
     Route: 041
     Dates: start: 20100801
  3. PAMIDRONATE DISODIUM [Suspect]
     Indication: METASTASES TO BONE
     Dosage: UNK UKN, UNK
     Route: 041
     Dates: start: 20050701

REACTIONS (5)
  - PATHOLOGICAL FRACTURE [None]
  - HYPERCALCAEMIA [None]
  - GINGIVITIS [None]
  - PUBIS FRACTURE [None]
  - CLAVICLE FRACTURE [None]
